FAERS Safety Report 10582682 (Version 4)
Quarter: 2014Q4

REPORT INFORMATION
  Report Type: Spontaneous
  Country: IT (occurrence: IT)
  Receive Date: 20141113
  Receipt Date: 20141226
  Transmission Date: 20150529
  Serious: Yes (Hospitalization)
  Sender: FDA-Public Use
  Company Number: IT-ROCHE-1489163

PATIENT
  Age: 64 Year
  Sex: Female

DRUGS (12)
  1. EUTIROX [Concomitant]
     Active Substance: LEVOTHYROXINE SODIUM
     Dosage: 100: 2 TAB ( SUNDAY)
     Route: 065
  2. LASIX [Concomitant]
     Active Substance: FUROSEMIDE
     Dosage: 25 MG TABLETS 30 TABLETS
     Route: 048
  3. TOTALIP [Concomitant]
     Active Substance: ATORVASTATIN
     Dosage: 40: 1 TAB
     Route: 065
  4. AVASTIN [Suspect]
     Active Substance: BEVACIZUMAB
     Indication: OVARIAN CANCER
     Dosage: 400 MG VIAL CONCENTRATE FOR SOLUTION FOR INFUSION, CONCENTRATE FOR SOLUTION FOR INJECTION
     Route: 041
     Dates: start: 20140519, end: 20140924
  5. EUTIROX [Concomitant]
     Active Substance: LEVOTHYROXINE SODIUM
     Dosage: 150: 1 TAB /DAILY ( MONDAY --} SAT.)
     Route: 065
  6. CARDIOASPIRIN [Concomitant]
     Active Substance: ASPIRIN
     Dosage: 100 : 1 TAB
     Route: 065
  7. PANTORC [Concomitant]
     Active Substance: PANTOPRAZOLE SODIUM
     Dosage: 20 : 1 TAB
     Route: 065
  8. TRITTICO [Concomitant]
     Active Substance: TRAZODONE HYDROCHLORIDE
     Dosage: 25 MG /ML : 20 DROPS 7DAILY
     Route: 065
  9. AVASTIN [Suspect]
     Active Substance: BEVACIZUMAB
     Route: 065
     Dates: start: 20141117
  10. LUVION (ITALY) [Concomitant]
     Dosage: 50 MG TABLETS 40 TABLETS
     Route: 048
  11. LOSFERRON [Concomitant]
     Dosage: 80 MG EFFERVESCENT TABLETS 30 EFFERVESCENT TABLETS,
     Route: 048
  12. VENLAFAXINE [Concomitant]
     Active Substance: VENLAFAXINE HYDROCHLORIDE
     Dosage: 37.5: 1 TAB
     Route: 065

REACTIONS (2)
  - Cerebral ischaemia [Recovering/Resolving]
  - Confusional state [Recovering/Resolving]

NARRATIVE: CASE EVENT DATE: 20141002
